FAERS Safety Report 23881296 (Version 2)
Quarter: 2024Q2

REPORT INFORMATION
  Report Type: Spontaneous
  Country: DE (occurrence: DE)
  Receive Date: 20240521
  Receipt Date: 20240603
  Transmission Date: 20240715
  Serious: Yes (Hospitalization, Other)
  Sender: FDA-Public Use
  Company Number: DE-BoehringerIngelheim-2024-BI-028814

PATIENT
  Age: 75 Year
  Sex: Male
  Weight: 80 kg

DRUGS (1)
  1. JARDIANCE [Suspect]
     Active Substance: EMPAGLIFLOZIN
     Indication: Cardiac failure
     Route: 048
     Dates: start: 20240202, end: 20240206

REACTIONS (7)
  - Pyelonephritis [Recovered/Resolved]
  - Renal failure [Recovered/Resolved]
  - Nephrolithiasis [Recovered/Resolved]
  - Kidney congestion [Unknown]
  - Ureterolithiasis [Unknown]
  - Pyelonephritis [Unknown]
  - Urinary tract infection [Not Recovered/Not Resolved]

NARRATIVE: CASE EVENT DATE: 20240206
